FAERS Safety Report 6694885-6 (Version None)
Quarter: 2010Q2

REPORT INFORMATION
  Report Type: 
  Country: None (occurrence: None)
  Receive Date: 20100420
  Receipt Date: 20100408
  Transmission Date: 20101027
  Serious: Yes (Other)
  Sender: FDA-Public Use
  Company Number: 1000013224

PATIENT
  Age: 20 Year
  Sex: Male

DRUGS (2)
  1. CITALOPRAM HYDROBROMIDE [Suspect]
     Indication: SCHIZOAFFECTIVE DISORDER
     Dosage: 20 MG (20 MG, 1 IN 1 D), ORAL
     Route: 048
     Dates: start: 20090601, end: 20100101
  2. ABILIFY [Suspect]
     Indication: SCHIZOAFFECTIVE DISORDER
     Dosage: 15 MG (15 MG, 1 IN 1 D), ORAL
     Route: 048
     Dates: start: 20091101

REACTIONS (4)
  - ALANINE AMINOTRANSFERASE INCREASED [None]
  - ASPARTATE AMINOTRANSFERASE INCREASED [None]
  - SEDATION [None]
  - WEIGHT INCREASED [None]
